FAERS Safety Report 19668538 (Version 1)
Quarter: 2021Q3

REPORT INFORMATION
  Report Type: Spontaneous
  Country: DE (occurrence: DE)
  Receive Date: 20210806
  Receipt Date: 20210806
  Transmission Date: 20211014
  Serious: Yes (Hospitalization, Other)
  Sender: FDA-Public Use
  Company Number: DE-MYLANLABS-2021M1048422

PATIENT
  Age: 14 Year
  Sex: Female

DRUGS (3)
  1. PARACETAMOL [Suspect]
     Active Substance: ACETAMINOPHEN
     Indication: PRODUCT USED FOR UNKNOWN INDICATION
     Dosage: 25000 MILLIGRAM, QD (DAILY DOSE: 25000 MG MILLGRAM(S) EVERY DAYS 50 SEPARATED DOSES)
     Route: 048
     Dates: start: 20190402, end: 20190402
  2. AUGMENTIN [Suspect]
     Active Substance: AMOXICILLIN\CLAVULANATE POTASSIUM
     Indication: PRODUCT USED FOR UNKNOWN INDICATION
     Dosage: 7 DOSAGE FORM, QD (DAILY DOSE: 7 DF DOSAGE FORM EVERY DAYS )
     Route: 048
     Dates: start: 20190402, end: 20190402
  3. FORMOLINE L112 [Suspect]
     Active Substance: ASCORBIC ACID\CELLULOSE\CHITOSAN\MAGNESIUM STEARATE\SILICON DIOXIDE\TARTARIC ACID
     Indication: PRODUCT USED FOR UNKNOWN INDICATION
     Dosage: 16 DOSAGE FORM, QD (DAILY DOSE: 16 DF DOSAGE FORM EVERY DAYS)
     Route: 048
     Dates: start: 20190402, end: 20190402

REACTIONS (4)
  - Suicidal ideation [Unknown]
  - Hepatic failure [Recovering/Resolving]
  - Intentional overdose [Recovering/Resolving]
  - Toxicity to various agents [Recovering/Resolving]

NARRATIVE: CASE EVENT DATE: 20190402
